FAERS Safety Report 23585051 (Version 1)
Quarter: 2024Q1

REPORT INFORMATION
  Report Type: Spontaneous
  Country: US (occurrence: US)
  Receive Date: 20240301
  Receipt Date: 20240301
  Transmission Date: 20240409
  Serious: No
  Sender: FDA-Public Use
  Company Number: US-ABBVIE-5659740

PATIENT
  Sex: Female

DRUGS (2)
  1. HUMIRA [Suspect]
     Active Substance: ADALIMUMAB
     Indication: Product used for unknown indication
     Route: 058
  2. ELIDEL [Concomitant]
     Active Substance: PIMECROLIMUS
     Indication: Product used for unknown indication
     Route: 061

REACTIONS (1)
  - Drug ineffective [Unknown]
